FAERS Safety Report 9745238 (Version 3)
Quarter: 2014Q2

REPORT INFORMATION
  Report Type: Spontaneous
  Country: US (occurrence: US)
  Receive Date: 20131211
  Receipt Date: 20140514
  Transmission Date: 20141212
  Serious: No
  Sender: FDA-Public Use
  Company Number: US-PFIZER INC-2013349887

PATIENT
  Sex: Female

DRUGS (2)
  1. CELEBREX [Suspect]
     Dosage: UNK
  2. LYRICA [Suspect]
     Dosage: 75 MG, 1X/DAY
     Route: 048

REACTIONS (2)
  - Nervous system disorder [Unknown]
  - Neuropathy peripheral [Unknown]
